FAERS Safety Report 5502963-X (Version None)
Quarter: 2007Q4

REPORT INFORMATION
  Report Type: 
  Country: None (occurrence: None)
  Receive Date: 20071031
  Receipt Date: 20071022
  Transmission Date: 20080405
  Serious: Yes (Other)
  Sender: FDA-Public Use
  Company Number: PHBS2007FI12764

PATIENT
  Age: 69 Year
  Sex: Male

DRUGS (7)
  1. LAMISIL [Suspect]
     Indication: NAIL TINEA
     Dosage: 205 MG/DAY
     Route: 048
     Dates: start: 20070629
  2. COMTESS [Suspect]
     Indication: PARKINSON'S DISEASE
     Dosage: 800 MG/DAY
     Dates: start: 20040101
  3. SINEMET [Suspect]
     Indication: PARKINSON'S DISEASE
     Dosage: 400 MG/DAY
     Dates: start: 20040101
  4. REQUIP [Suspect]
     Indication: PARKINSON'S DISEASE
     Dosage: 21 MG/DAY
     Dates: start: 20040101
  5. MAREVAN [Concomitant]
     Dosage: 6 TO 9 MG/DAY
  6. NITROGLYCERIN [Concomitant]
     Dosage: 0.5 MG, PRN
  7. VERRUXIN [Concomitant]
     Indication: SKIN PAPILLOMA
     Dosage: UNK, TID

REACTIONS (2)
  - DRUG INTERACTION [None]
  - HALLUCINATION, VISUAL [None]
